FAERS Safety Report 6225310-7 (Version None)
Quarter: 2009Q2

REPORT INFORMATION
  Report Type: 
  Country: None (occurrence: None)
  Receive Date: 20090612
  Receipt Date: 20090414
  Transmission Date: 20091009
  Serious: No
  Sender: FDA-Public Use
  Company Number: US-ABBOTT-09P-163-0568263-00

PATIENT
  Sex: Female
  Weight: 68.1 kg

DRUGS (6)
  1. HUMIRA [Suspect]
     Indication: PSORIATIC ARTHROPATHY
     Route: 058
     Dates: start: 20070701
  2. METHOTREXATE [Concomitant]
     Indication: PSORIATIC ARTHROPATHY
  3. MOBIC [Concomitant]
     Indication: PSORIATIC ARTHROPATHY
  4. VITAMINS [Concomitant]
     Indication: DRUG USE FOR UNKNOWN INDICATION
  5. IRON [Concomitant]
     Indication: ANAEMIA
  6. ALPRAZOLAM [Concomitant]
     Indication: ANXIETY

REACTIONS (1)
  - PAIN [None]
